FAERS Safety Report 19410452 (Version 2)
Quarter: 2021Q3

REPORT INFORMATION
  Report Type: Spontaneous
  Country: CA (occurrence: CA)
  Receive Date: 20210614
  Receipt Date: 20210814
  Transmission Date: 20211014
  Serious: Yes (Other)
  Sender: FDA-Public Use
  Company Number: CA-CELLTRION INC.-2021CA008007

PATIENT

DRUGS (21)
  1. CLONAZEPAM. [Concomitant]
     Active Substance: CLONAZEPAM
     Dosage: 1 DF
  2. OMEPRAZOLE. [Concomitant]
     Active Substance: OMEPRAZOLE
     Dosage: 1 DF
  3. INFLECTRA [Suspect]
     Active Substance: INFLIXIMAB-DYYB
     Dosage: 300 MG EVERY 6 WEEKS
     Route: 042
     Dates: start: 20171103, end: 20180124
  4. INFLECTRA [Suspect]
     Active Substance: INFLIXIMAB-DYYB
     Dosage: 5 MG/KG EVERY 4 WEEKS
     Route: 042
     Dates: start: 20190225
  5. GLYBURIDE. [Concomitant]
     Active Substance: GLYBURIDE
     Dosage: 2 MG, 1X/DAY
     Route: 048
     Dates: start: 2002
  6. RABEPRAZOLE [Concomitant]
     Active Substance: RABEPRAZOLE
     Dosage: 20 MG, ALTERNATE DAY (ONCE IN TWO DAYS)
     Route: 048
     Dates: start: 2007
  7. ATORVASTATIN [Concomitant]
     Active Substance: ATORVASTATIN
     Dosage: 1 DF
  8. AZOPT [Concomitant]
     Active Substance: BRINZOLAMIDE
     Dosage: 1 DROP
     Route: 047
     Dates: start: 2002
  9. IMURAN [Concomitant]
     Active Substance: AZATHIOPRINE
     Dosage: 50 MG, 1X/DAY
     Route: 048
     Dates: start: 20170609
  10. METFORMIN [Concomitant]
     Active Substance: METFORMIN HYDROCHLORIDE
     Dosage: 1000 MG, 2X/DAY
     Route: 048
     Dates: start: 2002
  11. INFLECTRA [Suspect]
     Active Substance: INFLIXIMAB-DYYB
     Indication: COLITIS ULCERATIVE
     Dosage: 300 MG EVERY 8 WEEKS/ (INCLUDES INDUCTION DOSES AT WEEK 0, 2 AND 6)
     Route: 042
     Dates: start: 20170629, end: 20170921
  12. INFLECTRA [Suspect]
     Active Substance: INFLIXIMAB-DYYB
     Dosage: 335 MG EVERY 6 WEEKS
     Route: 042
     Dates: start: 20181116, end: 20190123
  13. BRIMONIDINE [Concomitant]
     Active Substance: BRIMONIDINE TARTRATE
     Dosage: 1 DF
     Route: 065
  14. CITALOPRAM [Concomitant]
     Active Substance: CITALOPRAM HYDROBROMIDE
     Dosage: 10 MG, 1X/DAY
     Route: 048
     Dates: start: 201705
  15. VITAMIN B12 [Concomitant]
     Active Substance: CYANOCOBALAMIN
     Dosage: 1 DF
  16. INFLECTRA [Suspect]
     Active Substance: INFLIXIMAB-DYYB
     Dosage: 310 MG EVERY 6 WEEKS
     Route: 042
     Dates: start: 20180307, end: 20181005
  17. INFLECTRA [Suspect]
     Active Substance: INFLIXIMAB-DYYB
     Dosage: 370 MG
     Route: 042
     Dates: start: 20210525
  18. CANDESARTAN. [Concomitant]
     Active Substance: CANDESARTAN
     Dosage: 4 MG, 1X/DAY
     Dates: start: 2005
  19. TRAVOPROST. [Concomitant]
     Active Substance: TRAVOPROST
     Dosage: 1 DROP
     Route: 047
     Dates: start: 2002
  20. COMBIGAN [Concomitant]
     Active Substance: BRIMONIDINE TARTRATE\TIMOLOL MALEATE
     Dosage: 1 DROP
     Route: 047
     Dates: start: 2002
  21. HYDROCORTISONE. [Concomitant]
     Active Substance: HYDROCORTISONE
     Indication: PREMEDICATION
     Dosage: 100 MG/KG (PRE INFLECTRA)
     Route: 042

REACTIONS (4)
  - Frequent bowel movements [Recovering/Resolving]
  - Nausea [Unknown]
  - Proctitis ulcerative [Recovering/Resolving]
  - Off label use [Unknown]

NARRATIVE: CASE EVENT DATE: 2017
